FAERS Safety Report 6838330-6 (Version None)
Quarter: 2010Q3

REPORT INFORMATION
  Report Type: 
  Country: None (occurrence: None)
  Receive Date: 20100713
  Receipt Date: 20070609
  Transmission Date: 20110219
  Serious: No
  Sender: FDA-Public Use
  Company Number: US-PFIZER INC-2007048146

PATIENT
  Sex: Female
  Weight: 64.4 kg

DRUGS (13)
  1. CHANTIX [Suspect]
     Indication: SMOKING CESSATION THERAPY
     Route: 048
  2. MORPHINE [Concomitant]
     Indication: BACK DISORDER
  3. CELEXA [Concomitant]
     Indication: DEPRESSION
  4. PREDNISOLONE [Concomitant]
     Indication: PNEUMONIA
  5. VITAMINS [Concomitant]
  6. ACETYLSALICYLIC ACID [Concomitant]
  7. CALCIUM [Concomitant]
  8. CLONAZEPAM [Concomitant]
  9. COMPAZINE [Concomitant]
     Indication: NAUSEA
  10. TYLENOL [Concomitant]
     Indication: BACK DISORDER
  11. STOOL SOFTENER [Concomitant]
  12. FIBRE, DIETARY [Concomitant]
  13. OTHER RESPIRATORY SYSTEM PRODUCTS [Concomitant]

REACTIONS (2)
  - NAUSEA [None]
  - NERVOUSNESS [None]
